FAERS Safety Report 15788553 (Version 1)
Quarter: 2019Q1

REPORT INFORMATION
  Report Type: Report from Study
  Country: TR (occurrence: TR)
  Receive Date: 20190104
  Receipt Date: 20190104
  Transmission Date: 20190417
  Serious: Yes (Other)
  Sender: FDA-Public Use
  Company Number: TR-ROCHE-2236182

PATIENT

DRUGS (4)
  1. SIROLIMUS. [Suspect]
     Active Substance: SIROLIMUS
     Indication: IMMUNOSUPPRESSION
     Route: 065
  2. MYCOPHENOLATE MOFETIL. [Suspect]
     Active Substance: MYCOPHENOLATE MOFETIL
     Indication: IMMUNOSUPPRESSION
     Route: 065
  3. CYCLOSPORINE. [Suspect]
     Active Substance: CYCLOSPORINE
     Indication: IMMUNOSUPPRESSION
     Route: 065
  4. TACROLIMUS. [Suspect]
     Active Substance: TACROLIMUS
     Indication: IMMUNOSUPPRESSION
     Route: 065

REACTIONS (28)
  - Tremor [Unknown]
  - Osteoporosis [Unknown]
  - Onychomycosis [Unknown]
  - Urinary tract infection [Unknown]
  - Pruritus [Unknown]
  - Nausea [Unknown]
  - Insomnia [Unknown]
  - Tinnitus [Unknown]
  - Palpitations [Unknown]
  - Erythema [Unknown]
  - Lung infection [Unknown]
  - Cerebral vascular occlusion [Unknown]
  - Hair disorder [Unknown]
  - Alopecia [Unknown]
  - Weight increased [Unknown]
  - Acne [Unknown]
  - Fatigue [Unknown]
  - Somnolence [Unknown]
  - Vomiting [Unknown]
  - Diabetes mellitus [Unknown]
  - Eye disorder [Unknown]
  - Headache [Unknown]
  - Weight decreased [Unknown]
  - Ecchymosis [Unknown]
  - Irritability [Unknown]
  - Herpes zoster [Unknown]
  - Abdominal pain upper [Unknown]
  - Hypoaesthesia [Unknown]
